FAERS Safety Report 5604573-2 (Version None)
Quarter: 2008Q1

REPORT INFORMATION
  Report Type: 
  Country: None (occurrence: None)
  Receive Date: 20080124
  Receipt Date: 20080124
  Transmission Date: 20080703
  Serious: Yes (Other)
  Sender: FDA-Public Use
  Company Number: None

PATIENT
  Age: 56 Year
  Sex: Female
  Weight: 81.6475 kg

DRUGS (1)
  1. ZETIA [Suspect]
     Indication: BLOOD CHOLESTEROL INCREASED
     Dosage: 10 MG 1 TIME A DAY PO
     Route: 048
     Dates: start: 20071029, end: 20071104

REACTIONS (5)
  - BREAST HAEMORRHAGE [None]
  - BREAST PAIN [None]
  - CONTUSION [None]
  - CYST [None]
  - PLATELET COUNT DECREASED [None]
